FAERS Safety Report 18956150 (Version 1)
Quarter: 2021Q1

REPORT INFORMATION
  Report Type: Spontaneous
  Country: US (occurrence: US)
  Receive Date: 20210301
  Receipt Date: 20210301
  Transmission Date: 20210420
  Serious: No
  Sender: FDA-Public Use
  Company Number: US-MATRIXX INITIATIVES, INC.-2107457

PATIENT
  Age: 73 Year
  Sex: Female
  Weight: 79.09 kg

DRUGS (2)
  1. ELDERBERRY [Concomitant]
     Active Substance: HERBALS
  2. ZICAM NASAL ALLCLEAR NASAL CLEANSER SWABS [Suspect]
     Active Substance: EUCALYPTOL\MENTHOL
     Indication: NASOPHARYNGITIS
     Route: 045

REACTIONS (3)
  - Oropharyngeal pain [None]
  - Anosmia [Recovered/Resolved]
  - Ageusia [Recovered/Resolved]
